FAERS Safety Report 9523954 (Version 2)
Quarter: 2013Q4

REPORT INFORMATION
  Report Type: Spontaneous
  Country: US (occurrence: US)
  Receive Date: 20130916
  Receipt Date: 20131018
  Transmission Date: 20140711
  Serious: Yes (Death)
  Sender: FDA-Public Use
  Company Number: US-AMGEN-USASP2013063572

PATIENT
  Age: 80 Year
  Sex: Female

DRUGS (16)
  1. PROLIA [Suspect]
     Indication: PRODUCT USED FOR UNKNOWN INDICATION
     Dosage: UNK
     Route: 058
     Dates: start: 20130401
  2. NORVASC [Concomitant]
  3. CLONIDINE [Concomitant]
  4. NEURONTIN [Concomitant]
  5. METOPROLOL [Concomitant]
  6. ATIVAN [Concomitant]
  7. OMEPRAZOLE [Concomitant]
  8. PROCRIT                            /00909301/ [Concomitant]
  9. COLACE [Concomitant]
  10. CELEXA                             /00582602/ [Concomitant]
  11. PREDNISONE [Concomitant]
  12. VITAMIN B12                        /00056201/ [Concomitant]
  13. VITAMIN D                          /00107901/ [Concomitant]
  14. ZEMPLAR [Concomitant]
  15. VICODIN [Concomitant]
  16. AMBIEN [Concomitant]

REACTIONS (1)
  - Death [Fatal]
